FAERS Safety Report 9725877 (Version 8)
Quarter: 2014Q2

REPORT INFORMATION
  Report Type: Spontaneous
  Country: JP (occurrence: JP)
  Receive Date: 20131203
  Receipt Date: 20140530
  Transmission Date: 20141212
  Serious: Yes (Life-Threatening, Hospitalization, Other)
  Sender: FDA-Public Use
  Company Number: JP-JNJFOC-20131100576

PATIENT
  Age: 63 Year
  Sex: Male
  Weight: 62 kg

DRUGS (9)
  1. REMICADE [Suspect]
     Indication: PSORIASIS
     Route: 042
     Dates: start: 20130930
  2. REMICADE [Suspect]
     Indication: PSORIASIS
     Route: 042
     Dates: start: 20131016
  3. ISONIAZID [Suspect]
     Indication: PRODUCT USED FOR UNKNOWN INDICATION
     Route: 048
     Dates: start: 20130904
  4. ANTEBATE [Suspect]
     Indication: PRODUCT USED FOR UNKNOWN INDICATION
     Route: 065
     Dates: end: 20130930
  5. DOVONEX [Suspect]
     Indication: PRODUCT USED FOR UNKNOWN INDICATION
     Route: 065
     Dates: end: 20130930
  6. PREDONINE [Suspect]
     Indication: PRODUCT USED FOR UNKNOWN INDICATION
     Route: 065
  7. ISCOTIN [Concomitant]
     Indication: PROPHYLAXIS
     Route: 048
     Dates: start: 20130904, end: 20131120
  8. CICLOSPORIN [Concomitant]
     Route: 065
  9. PYDOXAL [Concomitant]
     Indication: PROPHYLAXIS
     Route: 048
     Dates: start: 20130904, end: 20131120

REACTIONS (16)
  - Dermatitis psoriasiform [Recovered/Resolved]
  - Bronchopulmonary aspergillosis [Not Recovered/Not Resolved]
  - Interstitial lung disease [Recovering/Resolving]
  - Pneumonia [Recovering/Resolving]
  - Hypoalbuminaemia [Unknown]
  - Glomerulonephritis membranoproliferative [Recovering/Resolving]
  - Urinary tract infection [Recovered/Resolved]
  - Nephrogenic anaemia [Unknown]
  - Type 2 diabetes mellitus [Unknown]
  - Pulmonary mass [Unknown]
  - Pulmonary tuberculosis [Unknown]
  - Hepatic function abnormal [Unknown]
  - Pleural effusion [Recovering/Resolving]
  - Bacteraemia [Unknown]
  - Pancytopenia [Unknown]
  - Alopecia [Not Recovered/Not Resolved]
